FAERS Safety Report 23856248 (Version 1)
Quarter: 2024Q2

REPORT INFORMATION
  Report Type: Spontaneous
  Country: FR (occurrence: FR)
  Receive Date: 20240515
  Receipt Date: 20240515
  Transmission Date: 20240716
  Serious: Yes (Hospitalization, Other)
  Sender: FDA-Public Use
  Company Number: FR-GLANDPHARMA-FR-2024GLNLIT00123

PATIENT
  Age: 3 Week
  Sex: Male

DRUGS (5)
  1. ROCURONIUM BROMIDE [Suspect]
     Active Substance: ROCURONIUM BROMIDE
     Indication: Neuromuscular blockade
     Route: 065
  2. PROPOFOL [Concomitant]
     Active Substance: PROPOFOL
     Indication: Anaesthesia
     Route: 065
  3. REMIFENTANIL [Concomitant]
     Active Substance: REMIFENTANIL
     Indication: Perioperative analgesia
     Route: 065
  4. FENTANYL [Concomitant]
     Active Substance: FENTANYL\FENTANYL CITRATE
     Indication: Perioperative analgesia
     Route: 065
  5. SEVOFLURANE [Concomitant]
     Active Substance: SEVOFLURANE
     Indication: Anaesthesia
     Route: 065

REACTIONS (6)
  - Respiratory distress [Recovered/Resolved]
  - Cyanosis neonatal [Recovered/Resolved]
  - Neuromuscular blocking therapy [Recovered/Resolved]
  - Recurrence of neuromuscular blockade [Recovered/Resolved]
  - Medication error [Unknown]
  - Accidental overdose [Unknown]
